FAERS Safety Report 5417921-3 (Version None)
Quarter: 2007Q3

REPORT INFORMATION
  Report Type: 
  Country: None (occurrence: None)
  Receive Date: 20070815
  Receipt Date: 20070803
  Transmission Date: 20080115
  Serious: Yes (Hospitalization)
  Sender: FDA-Public Use
  Company Number: 2006-01-1199

PATIENT
  Age: 59 Year
  Sex: Male

DRUGS (5)
  1. DESLORATADINE [Suspect]
     Indication: URTICARIA
     Dosage: 5 MG; QD; PO
     Route: 048
     Dates: start: 20060117, end: 20060118
  2. TROMBYL [Concomitant]
  3. METOPROLOL SUCCINATE [Concomitant]
  4. ANTIHYPERTENSIVE AGENT [Concomitant]
  5. METOPROLOL SUCCINATE [Concomitant]

REACTIONS (6)
  - EYE SWELLING [None]
  - INSOMNIA [None]
  - LIP SWELLING [None]
  - RASH [None]
  - SWELLING FACE [None]
  - VOCAL CORD DISORDER [None]
